FAERS Safety Report 6951987-4 (Version None)
Quarter: 2010Q3

REPORT INFORMATION
  Report Type: 
  Country: None (occurrence: None)
  Receive Date: 20100829
  Receipt Date: 20100420
  Transmission Date: 20110219
  Serious: No
  Sender: FDA-Public Use
  Company Number: US-ABBOTT-10P-163-0640532-00

PATIENT
  Sex: Male
  Weight: 88.53 kg

DRUGS (11)
  1. NIASPAN [Suspect]
     Indication: BLOOD CHOLESTEROL INCREASED
     Route: 048
     Dates: start: 20100301, end: 20100414
  2. NIASPAN [Suspect]
     Route: 048
     Dates: start: 20100301, end: 20100301
  3. NIASPAN [Suspect]
     Route: 048
     Dates: start: 20100417
  4. NIACIN [Suspect]
     Indication: BLOOD CHOLESTEROL INCREASED
     Route: 048
     Dates: start: 20080101
  5. NIACIN [Suspect]
     Route: 048
  6. NIACIN [Suspect]
     Route: 048
     Dates: end: 20100301
  7. FLOMAX [Concomitant]
     Indication: BENIGN PROSTATIC HYPERPLASIA
     Dosage: QOD
  8. DETROL [Concomitant]
     Indication: BENIGN PROSTATIC HYPERPLASIA
     Dosage: QOD, OPPOSITE DAYS OF FLOMAX
  9. EYE DROPS [Concomitant]
     Indication: GLAUCOMA
     Route: 047
  10. VITAMINS [Concomitant]
     Indication: VITAMIN SUPPLEMENTATION
  11. TWO BLOOD PRESSURE MEDICATIONS [Concomitant]
     Indication: HYPERTENSION

REACTIONS (3)
  - DIPLOPIA [None]
  - DRUG DOSE OMISSION [None]
  - VISION BLURRED [None]
